FAERS Safety Report 4391751-6 (Version None)
Quarter: 2004Q3

REPORT INFORMATION
  Report Type: 
  Country: None (occurrence: None)
  Receive Date: 20040707
  Receipt Date: 20040624
  Transmission Date: 20050211
  Serious: Yes (Hospitalization)
  Sender: FDA-Public Use
  Company Number: JP-MERCK-0406USA02458

PATIENT
  Age: 60 Year
  Sex: Male

DRUGS (5)
  1. BAYASPIRIN [Concomitant]
     Route: 048
     Dates: end: 20040621
  2. PEPCID RPD [Suspect]
     Route: 048
     Dates: start: 20040401, end: 20040621
  3. SIGMART [Concomitant]
     Route: 048
     Dates: end: 20040621
  4. PANALDINE [Suspect]
     Route: 048
     Dates: start: 20040501, end: 20040621
  5. DIOVAN [Concomitant]
     Route: 048
     Dates: end: 20040621

REACTIONS (1)
  - GRANULOCYTE COUNT DECREASED [None]
